FAERS Safety Report 9660838 (Version 1)
Quarter: 2013Q4

REPORT INFORMATION
  Report Type: Spontaneous
  Country: US (occurrence: US)
  Receive Date: 20131031
  Receipt Date: 20131031
  Transmission Date: 20140711
  Serious: Yes (Other)
  Sender: FDA-Public Use
  Company Number: US-BAYER-2013-132769

PATIENT
  Age: 71 Year
  Sex: Male
  Weight: 97.3 kg

DRUGS (8)
  1. XARELTO [Suspect]
     Indication: CEREBROVASCULAR ACCIDENT PROPHYLAXIS
     Dosage: 20 MG, QD
     Route: 048
     Dates: start: 20131022
  2. XARELTO [Interacting]
     Indication: ATRIAL FIBRILLATION
  3. ACETYLSALICYLIC ACID({=100 MG) [Interacting]
     Indication: HYPERTENSION
     Dosage: 81 MG, QD
     Route: 048
  4. LISINOPRIL [Concomitant]
     Indication: HYPERTENSION
     Dosage: 12.5/20MG
     Route: 065
  5. FENOFIBRATE [Concomitant]
     Dosage: 134 MG, QD
     Route: 048
  6. PRAVASTATIN [Concomitant]
     Dosage: 20 MG, QD
     Route: 048
  7. DILTIAZEM ER [Concomitant]
     Dosage: 140 MG, BID
     Route: 048
     Dates: end: 20131023
  8. DILTIAZEM ER [Concomitant]
     Dosage: 140 MG, BID
     Route: 048
     Dates: start: 20131024

REACTIONS (1)
  - Haematochezia [Not Recovered/Not Resolved]
